FAERS Safety Report 12699132 (Version 3)
Quarter: 2017Q2

REPORT INFORMATION
  Report Type: Report from Study
  Country: PA (occurrence: PA)
  Receive Date: 20160830
  Receipt Date: 20170406
  Transmission Date: 20170830
  Serious: Yes (Other)
  Sender: FDA-Public Use
  Company Number: PHHY2016PA116860

PATIENT
  Age: 64 Year
  Sex: Female

DRUGS (4)
  1. SANDOSTATIN LAR DEPOT [Suspect]
     Active Substance: OCTREOTIDE ACETATE
     Indication: PITUITARY TUMOUR BENIGN
     Dosage: 20 MG, QMO
     Route: 030
     Dates: start: 20150527
  2. METFORMIN [Suspect]
     Active Substance: METFORMIN HYDROCHLORIDE
     Dosage: 3 DF, QD
     Route: 048
  3. METFORMIN [Suspect]
     Active Substance: METFORMIN HYDROCHLORIDE
     Indication: DIABETES MELLITUS
     Dosage: 500 MG, Q12H
     Route: 048
  4. LISINOPRIL. [Concomitant]
     Active Substance: LISINOPRIL
     Indication: CATARACT
     Route: 065

REACTIONS (20)
  - Chest pain [Unknown]
  - Flatulence [Unknown]
  - Abdominal pain upper [Unknown]
  - Syncope [Unknown]
  - Anxiety [Unknown]
  - Somnolence [Unknown]
  - Asthenia [Unknown]
  - Tachycardia [Unknown]
  - Cataract [Unknown]
  - Glaucoma [Unknown]
  - Dyspnoea [Unknown]
  - Fall [Unknown]
  - Pain in extremity [Unknown]
  - Fatigue [Unknown]
  - Blood glucose increased [Unknown]
  - Heart rate decreased [Unknown]
  - Eye irritation [Unknown]
  - Toothache [Unknown]
  - Malaise [Unknown]
  - Dental caries [Unknown]
